FAERS Safety Report 4395396-3 (Version None)
Quarter: 2004Q3

REPORT INFORMATION
  Report Type: 
  Country: None (occurrence: None)
  Receive Date: 20040712
  Receipt Date: 20040712
  Transmission Date: 20050211
  Serious: Yes (Life-Threatening, Hospitalization)
  Sender: FDA-Public Use
  Company Number: None

PATIENT
  Age: 38 Year
  Sex: Female
  Weight: 104 kg

DRUGS (19)
  1. RAPAMUNE [Suspect]
     Indication: RENAL TRANSPLANT
     Dosage: 1 MG DAILY ORAL
     Route: 048
     Dates: start: 20020101, end: 20040628
  2. COMBIVENT [Concomitant]
  3. AMARYL [Concomitant]
  4. CELLCEPT [Concomitant]
  5. LASIX [Concomitant]
  6. ASPIRIN [Concomitant]
  7. HYDRALAZINE [Concomitant]
  8. FERROUS SULFATE TAB [Concomitant]
  9. CLONIDINE HCL [Concomitant]
  10. METOPROLOL [Concomitant]
  11. SODIUM BICARBONATE [Concomitant]
  12. PROTONIX [Concomitant]
  13. NIASPAN [Concomitant]
  14. ZETIA [Concomitant]
  15. ACTOS [Concomitant]
  16. POTASSIUM [Concomitant]
  17. DOCUSATE [Concomitant]
  18. PRAVACHOL [Concomitant]
  19. PREDNISONE [Concomitant]

REACTIONS (3)
  - DYSPNOEA [None]
  - HAEMOPTYSIS [None]
  - INTERSTITIAL LUNG DISEASE [None]
